FAERS Safety Report 6841656-3 (Version None)
Quarter: 2010Q3

REPORT INFORMATION
  Report Type: 
  Country: None (occurrence: None)
  Receive Date: 20100714
  Receipt Date: 20070915
  Transmission Date: 20110219
  Serious: No
  Sender: FDA-Public Use
  Company Number: US-PFIZER INC-2007056589

PATIENT
  Sex: Female
  Weight: 79.545 kg

DRUGS (22)
  1. CHANTIX [Suspect]
     Indication: SMOKING CESSATION THERAPY
     Dates: start: 20070510, end: 20070601
  2. DETROL LA [Suspect]
     Indication: INCONTINENCE
     Dates: start: 20070401
  3. ZOLOFT [Concomitant]
     Indication: DEPRESSION
  4. IBUPROFEN [Concomitant]
     Indication: BACK PAIN
  5. TOPAMAX [Concomitant]
     Indication: MIGRAINE
  6. COMBIVENT [Concomitant]
     Indication: CHRONIC OBSTRUCTIVE PULMONARY DISEASE
  7. PRAVASTATIN [Concomitant]
  8. ALL OTHER THERAPEUTIC PRODUCTS [Concomitant]
     Route: 055
  9. PLAVIX [Concomitant]
  10. ZETIA [Concomitant]
  11. ATENOLOL [Concomitant]
  12. ACETYLSALICYLIC ACID [Concomitant]
  13. CYMBALTA [Concomitant]
  14. PRILOSEC [Concomitant]
  15. OSTOCALCIUM [Concomitant]
  16. FOSAMAX PLUS D [Concomitant]
  17. COUMADIN [Concomitant]
  18. NITROGLYCERIN [Concomitant]
     Indication: CHEST PAIN
  19. NICOTINE [Concomitant]
  20. VITAMIN D [Concomitant]
  21. DYAZIDE [Concomitant]
     Indication: SWELLING
     Route: 048
  22. HYDROCHLOROTHIAZIDE [Concomitant]
     Indication: SWELLING

REACTIONS (2)
  - DRUG INEFFECTIVE [None]
  - DRY MOUTH [None]
